FAERS Safety Report 26054363 (Version 1)
Quarter: 2025Q4

REPORT INFORMATION
  Report Type: Report from Study
  Country: US (occurrence: US)
  Receive Date: 20251117
  Receipt Date: 20251117
  Transmission Date: 20260118
  Serious: Yes (Hospitalization, Other)
  Sender: CSL BEHRING
  Company Number: US-BEH-2025225171

PATIENT
  Age: 77 Year
  Sex: Male

DRUGS (2)
  1. HIZENTRA [Suspect]
     Active Substance: HUMAN IMMUNOGLOBULIN G
     Route: 065
  2. HUMAN IMMUNOGLOBULIN G [Suspect]
     Active Substance: HUMAN IMMUNOGLOBULIN G
     Route: 065

REACTIONS (11)
  - Cardiac operation [Unknown]
  - Blood pressure decreased [Unknown]
  - Blindness [Unknown]
  - Transfusion-related circulatory overload [Unknown]
  - Dyspnoea [Unknown]
  - Wheelchair user [Unknown]
  - Dysstasia [Unknown]
  - Thrombosis [Unknown]
  - Bladder cancer [Unknown]
  - Therapy interrupted [Unknown]
  - Physical disability [Unknown]
